FAERS Safety Report 12251055 (Version 1)
Quarter: 2016Q2

REPORT INFORMATION
  Report Type: Spontaneous
  Country: US (occurrence: US)
  Receive Date: 20160410
  Receipt Date: 20160410
  Transmission Date: 20160815
  Serious: No
  Sender: FDA-Public Use
  Company Number: US-JNJFOC-20160303183

PATIENT
  Sex: Female

DRUGS (4)
  1. PEPCID AC [Suspect]
     Active Substance: FAMOTIDINE
     Indication: HYPERCHLORHYDRIA
     Route: 048
  2. PEPCID AC [Suspect]
     Active Substance: FAMOTIDINE
     Indication: HYPERCHLORHYDRIA
     Dosage: DAILY
     Route: 048
  3. BETA BLOCKING AGENTS [Concomitant]
     Active Substance: UNSPECIFIED INGREDIENT
     Indication: HEART RATE INCREASED
     Dosage: 2 TO 3X A DAY COUPLE YEARS
     Route: 065
  4. XANAX [Concomitant]
     Active Substance: ALPRAZOLAM
     Indication: VERTIGO
     Dosage: COUPLE YEARS
     Route: 065

REACTIONS (3)
  - Dizziness [Recovered/Resolved]
  - Wrong technique in product usage process [Unknown]
  - Vertigo [Recovered/Resolved]
